FAERS Safety Report 10590373 (Version 1)
Quarter: 2014Q4

REPORT INFORMATION
  Report Type: Spontaneous
  Country: US (occurrence: None)
  Receive Date: 20141117
  Receipt Date: 20141117
  Transmission Date: 20150529
  Serious: No
  Sender: FDA-Public Use
  Company Number: None

PATIENT
  Age: 76 Year
  Sex: Male
  Weight: 84.37 kg

DRUGS (1)
  1. AMLODIPINE BESYLATE. [Suspect]
     Active Substance: AMLODIPINE BESYLATE
     Indication: HYPERTENSION
     Route: 048
     Dates: start: 20140830, end: 20141116

REACTIONS (7)
  - Drug hypersensitivity [None]
  - Urticaria [None]
  - Chest discomfort [None]
  - Lyme disease [None]
  - Pruritus [None]
  - Rash macular [None]
  - Product substitution issue [None]

NARRATIVE: CASE EVENT DATE: 20141116
